FAERS Safety Report 9156829 (Version 1)
Quarter: 2013Q1

REPORT INFORMATION
  Report Type: Spontaneous
  Country: US (occurrence: None)
  Receive Date: 20130212
  Receipt Date: 20130212
  Transmission Date: 20140127
  Serious: Yes (Other)
  Sender: FDA-Public Use
  Company Number: TPA2012A07235

PATIENT
  Age: 66 Year
  Sex: Male
  Weight: 105.24 kg

DRUGS (3)
  1. ACTOS [Suspect]
     Indication: TYPE 2 DIABETES MELLITUS
     Dates: start: 2007, end: 2010
  2. METFORMIN (METFORMIN) [Concomitant]
  3. AMARYL (GLIMEPIRIDE) [Concomitant]

REACTIONS (1)
  - Bladder cancer [None]
